FAERS Safety Report 9269749 (Version 2)
Quarter: 2013Q2

REPORT INFORMATION
  Report Type: Spontaneous
  Country: US (occurrence: US)
  Receive Date: 20130503
  Receipt Date: 20130611
  Transmission Date: 20140414
  Serious: Yes (Hospitalization)
  Sender: FDA-Public Use
  Company Number: US-BAYER-2013-053837

PATIENT
  Age: 32 Year
  Sex: Female

DRUGS (21)
  1. YAZ [Suspect]
  2. BEYAZ [Suspect]
  3. MUCINEX DM [Concomitant]
     Dosage: 2 TABLETS EVERY 12 HOURS
     Route: 048
     Dates: start: 20120111
  4. MUCINEX DM [Concomitant]
     Dosage: 30-600 CR
     Dates: start: 20120211
  5. TRAZODONE [Concomitant]
     Dosage: UNK
     Route: 048
     Dates: start: 20111205
  6. MOBIC [Concomitant]
     Dosage: UNK
     Route: 048
     Dates: start: 20120221
  7. FEOSOL [Concomitant]
     Dosage: UNK
     Route: 048
     Dates: start: 20120221
  8. SENOKOT [Concomitant]
     Dosage: UNK
     Route: 048
     Dates: start: 20120221
  9. TRAMADOL HYDROCHLORIDE [Concomitant]
     Dosage: 50 MG, UNK
     Dates: start: 20111117
  10. ACETAMINOPHEN W/HYDROCODONE [Concomitant]
     Dosage: 500 MG, UNK
     Dates: start: 20111118
  11. ONDANSETRON [Concomitant]
     Dosage: 4 MG, UNK
     Dates: start: 20111118
  12. NEXIUM [Concomitant]
     Dosage: 20 MG, UNK
     Dates: start: 20111201
  13. IBUPROFEN [Concomitant]
     Dosage: 800 MG, UNK
     Dates: start: 20111205
  14. IBUPROFEN [Concomitant]
     Dosage: 800 MG, UNK
     Dates: start: 20111230
  15. AZITHROMYCIN [Concomitant]
     Dosage: 250 MG, UNK
     Dates: start: 20120111
  16. POLYETHYLENE GLYCOL [Concomitant]
     Dosage: 3350NF
     Dates: start: 20120210
  17. LACTULOSE [Concomitant]
     Dosage: 10 GM/15 SOL
     Dates: start: 20120210
  18. HELIDAC [Concomitant]
     Dosage: UNK
     Dates: start: 20120215
  19. RANITIDINE [Concomitant]
     Dosage: 150 MG, UNK
     Dates: start: 20120215
  20. MELOXICAM [Concomitant]
     Dosage: 15 MG, UNK
     Dates: start: 20120221
  21. FERROUS SULFATE [Concomitant]
     Dosage: 5 G, UNK
     Dates: start: 20120222

REACTIONS (2)
  - Pulmonary embolism [None]
  - Deep vein thrombosis [None]
